FAERS Safety Report 7429643-8 (Version None)
Quarter: 2011Q2

REPORT INFORMATION
  Report Type: 
  Country: None (occurrence: None)
  Receive Date: 20110421
  Receipt Date: 20110411
  Transmission Date: 20111010
  Serious: Yes (Other)
  Sender: FDA-Public Use
  Company Number: US-JNJFOC-20110405554

PATIENT
  Sex: Male
  Weight: 68.95 kg

DRUGS (9)
  1. FENTANYL [Suspect]
     Route: 062
  2. FENTANYL CITRATE [Suspect]
     Indication: PRODUCT USED FOR UNKNOWN INDICATION
     Route: 062
  3. SOMA [Concomitant]
     Indication: MUSCLE RELAXANT THERAPY
     Dosage: AS NEEDED AT NIGHT
     Route: 048
  4. VITAMIN D [Concomitant]
     Indication: NUTRITIONAL SUPPORT
     Dosage: DAILY
     Route: 048
  5. UNKNOWN MEDICATION [Suspect]
     Indication: PRODUCT USED FOR UNKNOWN INDICATION
     Route: 062
  6. FENTANYL [Suspect]
     Dosage: NDC: 07781-7242-55
     Route: 062
  7. FENTANYL [Suspect]
     Indication: ARTHRALGIA
     Dosage: NDC: 0781-7241-55
     Route: 062
  8. OXYCODONE HCL [Concomitant]
     Indication: BREAKTHROUGH PAIN
     Dosage: UPTO 4 TABLETS DAILY
     Route: 048
  9. MULTIPLE VITAMIN [Concomitant]
     Indication: NUTRITIONAL SUPPORT
     Dosage: DAILY
     Route: 048

REACTIONS (7)
  - DEPENDENCE [None]
  - FEELING JITTERY [None]
  - DRUG DOSE OMISSION [None]
  - NERVOUSNESS [None]
  - WITHDRAWAL SYNDROME [None]
  - DRUG INEFFECTIVE [None]
  - ABNORMAL BEHAVIOUR [None]
